FAERS Safety Report 8432112-X (Version None)
Quarter: 2012Q2

REPORT INFORMATION
  Report Type: 
  Country: None (occurrence: None)
  Receive Date: 20120606
  Receipt Date: 20120528
  Transmission Date: 20120825
  Serious: Yes (Death)
  Sender: FDA-Public Use
  Company Number: AUR-APL-2012-02415

PATIENT
  Age: 49 Year
  Sex: Male

DRUGS (5)
  1. DULOXETINE HYDROCHLORIDE [Suspect]
     Indication: AGITATED DEPRESSION
     Dosage: (60 MG), ORAL
     Route: 048
     Dates: start: 20101019, end: 20101229
  2. DIAZEPAM [Concomitant]
  3. ZOPICLONE (ZOPICLONE0 [Concomitant]
  4. CITALOPRAM HYDROBROMIDE [Suspect]
     Indication: DEPRESSED MOOD
     Dosage: (20 MG), ORAL
     Route: 048
     Dates: start: 20101001, end: 20101018
  5. OLANZAPINE [Concomitant]

REACTIONS (1)
  - SUICIDAL IDEATION [None]
